FAERS Safety Report 4299230-1 (Version None)
Quarter: 2004Q1

REPORT INFORMATION
  Report Type: 
  Country: None (occurrence: None)
  Receive Date: 20040217
  Receipt Date: 20040217
  Transmission Date: 20041129
  Serious: Yes (Death)
  Sender: FDA-Public Use
  Company Number: None

PATIENT
  Sex: Male
  Weight: 97.07 kg

DRUGS (6)
  1. DARBEPOETIN ALFA 1000 MCG/ML AMGEN [Suspect]
     Indication: MYELODYSPLASTIC SYNDROME
     Dosage: 400 MCG EVERY WEEK SQ
     Route: 058
     Dates: start: 20031229, end: 20040103
  2. IBUPROFEN [Concomitant]
  3. PRAVACHOL [Concomitant]
  4. TOPROL-XL [Concomitant]
  5. NAPROSEN [Concomitant]
  6. LORTAB [Concomitant]

REACTIONS (2)
  - CEREBROVASCULAR ACCIDENT [None]
  - MYOCARDIAL INFARCTION [None]
